FAERS Safety Report 4449795-1 (Version None)
Quarter: 2004Q3

REPORT INFORMATION
  Report Type: 
  Country: None (occurrence: None)
  Receive Date: 20040802
  Receipt Date: 20031110
  Transmission Date: 20050211
  Serious: Yes (Other)
  Sender: FDA-Public Use
  Company Number: US-SHR-03-012835

PATIENT
  Age: 25 Year
  Sex: Male
  Weight: 79.4 kg

DRUGS (1)
  1. MAGNEVIST [Suspect]
     Indication: NUCLEAR MAGNETIC RESONANCE IMAGING
     Dosage: 4 ML, 1 DOSE, INTRAVENOUS
     Route: 042
     Dates: start: 20030812, end: 20030812

REACTIONS (3)
  - CONVULSION [None]
  - FEELING ABNORMAL [None]
  - SYNCOPE VASOVAGAL [None]
